FAERS Safety Report 23835310 (Version 2)
Quarter: 2024Q2

REPORT INFORMATION
  Report Type: Spontaneous
  Country: US (occurrence: US)
  Receive Date: 20240509
  Receipt Date: 20240509
  Transmission Date: 20240716
  Serious: Yes (Other)
  Sender: FDA-Public Use
  Company Number: US-SANDOZ-SDZ2024US045554

PATIENT
  Sex: Female

DRUGS (1)
  1. RECLAST [Suspect]
     Active Substance: ZOLEDRONIC ACID
     Indication: Product used for unknown indication
     Dosage: 5MG/100ML, 1X A YEAR
     Route: 065

REACTIONS (3)
  - Osteomyelitis [Unknown]
  - Osteonecrosis [Unknown]
  - Tooth extraction [Unknown]

NARRATIVE: CASE EVENT DATE: 20220501
